FAERS Safety Report 10634051 (Version 1)
Quarter: 2014Q4

REPORT INFORMATION
  Report Type: Spontaneous
  Country: US (occurrence: None)
  Receive Date: 20141203
  Receipt Date: 20141203
  Transmission Date: 20150529
  Serious: Yes (Hospitalization)
  Sender: FDA-Public Use
  Company Number: FK201405577

PATIENT
  Age: 56 Year
  Sex: Male

DRUGS (3)
  1. BLEOMYCIN [Suspect]
     Active Substance: BLEOMYCIN SULFATE
     Indication: GERM CELL NEOPLASM
     Dosage: CYCLICAL, STOPPED
  2. ETOPOSIDE. [Suspect]
     Active Substance: ETOPOSIDE
     Indication: GERM CELL NEOPLASM
     Dosage: CYCLICAL, STOPPED
  3. CISPLATIN (MANUFACTURER UNKNOWN) (CISPLATIN) (CISPLATIN) [Suspect]
     Active Substance: CISPLATIN
     Indication: GERM CELL NEOPLASM
     Dosage: CYCLICAL, STOPPED

REACTIONS (14)
  - Headache [None]
  - Lethargy [None]
  - Cryptococcosis [None]
  - Cerebral infarction [None]
  - Apnoea [None]
  - Vomiting [None]
  - Confusional state [None]
  - Febrile neutropenia [None]
  - Diarrhoea [None]
  - Fatigue [None]
  - Nausea [None]
  - Neutrophil count decreased [None]
  - Tachycardia [None]
  - Generalised tonic-clonic seizure [None]
